FAERS Safety Report 8763146 (Version 1)
Quarter: 2012Q4

REPORT INFORMATION
  Report Type: 
  Country: US (occurrence: US)
  Receive Date: 20120831
  Receipt Date: 20120831
  Transmission Date: 20130627
  Serious: Yes (Hospitalization)
  Sender: FDA-Public Use
  Company Number: US-BAYER-2012-089406

PATIENT
  Age: 45 Year
  Sex: Female

DRUGS (7)
  1. YAZ [Suspect]
  2. GIANVI [Suspect]
  3. YASMIN [Suspect]
  4. FIORICET [Concomitant]
  5. PHENERGAN [Concomitant]
  6. DOXYCLINE [Concomitant]
  7. KEPPRA [Concomitant]
     Indication: CONVULSION

REACTIONS (2)
  - Haemorrhage intracranial [None]
  - Intracranial venous sinus thrombosis [None]
